FAERS Safety Report 23014606 (Version 1)
Quarter: 2023Q4

REPORT INFORMATION
  Report Type: Spontaneous
  Country: RU (occurrence: RU)
  Receive Date: 20231002
  Receipt Date: 20231002
  Transmission Date: 20240110
  Serious: Yes (Other)
  Sender: FDA-Public Use
  Company Number: RU-AMGEN-RUSSP2023166888

PATIENT

DRUGS (2)
  1. XGEVA [Suspect]
     Active Substance: DENOSUMAB
     Indication: Bone giant cell tumour
     Dosage: 120 MILLIGRAM, Q2WK (FIRST 3 INJECTIONS WITH AN INTERVAL OF 14 DAYS)
     Route: 058
  2. XGEVA [Suspect]
     Active Substance: DENOSUMAB
     Dosage: 120 MILLIGRAM, Q4WK (NEXT 3 INJECTIONS WITH AN INTERVAL OF 28 DAYS)
     Route: 058

REACTIONS (2)
  - Pathological fracture [Unknown]
  - Off label use [Unknown]
